FAERS Safety Report 5090828-X (Version None)
Quarter: 2006Q3

REPORT INFORMATION
  Report Type: 
  Country: None (occurrence: None)
  Receive Date: 20060823
  Receipt Date: 20060810
  Transmission Date: 20061208
  Serious: Yes (Other)
  Sender: FDA-Public Use
  Company Number: ENT 2006-0059

PATIENT
  Age: 72 Year
  Sex: Female

DRUGS (7)
  1. COMTAN [Suspect]
     Indication: HALLUCINATION
     Dosage: 600 MG (200 MG, 3 IN 1 D) ORAL
     Route: 048
     Dates: start: 20060404, end: 20060405
  2. COMTAN [Suspect]
     Indication: PARKINSON'S DISEASE
     Dosage: 600 MG (200 MG, 3 IN 1 D) ORAL
     Route: 048
     Dates: start: 20060404, end: 20060405
  3. LEVODOPA [Concomitant]
  4. LOPRESSOR [Concomitant]
  5. AMANTADINE HCL [Concomitant]
  6. ASPIRIN [Concomitant]
  7. TEGRETOL-XR [Concomitant]

REACTIONS (2)
  - HALLUCINATION [None]
  - REFUSAL OF TREATMENT BY PATIENT [None]
